FAERS Safety Report 4657354-0 (Version None)
Quarter: 2005Q2

REPORT INFORMATION
  Report Type: 
  Country: None (occurrence: None)
  Receive Date: 20050411
  Receipt Date: 20020605
  Transmission Date: 20051028
  Serious: Yes (Other)
  Sender: FDA-Public Use
  Company Number: 5057

PATIENT
  Age: 18 Year
  Sex: Female

DRUGS (6)
  1. VINCRISTINE [Suspect]
     Indication: BURKITT'S LYMPHOMA
     Dosage: 1.4 MG/M2 PER_CYCLE
  2. METHOTREXATE [Concomitant]
  3. CYCLOPHOSPHAMIDE [Concomitant]
  4. DOXORUBICIN [Concomitant]
  5. METHYLPREDNISOLONE SODIUM SUCCINATE [Concomitant]
  6. LEUCOVORIN CALCIUM [Concomitant]

REACTIONS (1)
  - NEUROTOXICITY [None]
